FAERS Safety Report 8288105-9 (Version None)
Quarter: 2012Q2

REPORT INFORMATION
  Report Type: 
  Country: None (occurrence: None)
  Receive Date: 20120411
  Receipt Date: 20120404
  Transmission Date: 20120825
  Serious: Yes (Other)
  Sender: FDA-Public Use
  Company Number: ADR-2012-00670

PATIENT
  Sex: Female

DRUGS (2)
  1. BACLOFEN [Suspect]
     Indication: SPINAL CORD INJURY
     Dosage: 499.6MCG/DAY
  2. BACLOFEN [Suspect]
     Indication: MUSCLE SPASTICITY
     Dosage: 499.6MCG/DAY

REACTIONS (5)
  - PYREXIA [None]
  - IMPLANT SITE ERYTHEMA [None]
  - DEVICE CONNECTION ISSUE [None]
  - ANXIETY [None]
  - IMPLANT SITE SWELLING [None]
